FAERS Safety Report 23287048 (Version 1)
Quarter: 2023Q4

REPORT INFORMATION
  Report Type: Spontaneous
  Country: US (occurrence: None)
  Receive Date: 20231209
  Receipt Date: 20231209
  Transmission Date: 20240110
  Serious: Yes (Other)
  Sender: FDA-Public Use
  Company Number: None

PATIENT
  Age: 41 Year
  Sex: Female
  Weight: 49.5 kg

DRUGS (6)
  1. VRAYLAR [Suspect]
     Active Substance: CARIPRAZINE
     Indication: Major depression
     Route: 048
     Dates: start: 20200301, end: 20210701
  2. CYMBALTA [Concomitant]
     Active Substance: DULOXETINE HYDROCHLORIDE
  3. WELLBUTRIN XL [Concomitant]
     Active Substance: BUPROPION HYDROCHLORIDE
  4. ABILIFY [Concomitant]
     Active Substance: ARIPIPRAZOLE
  5. ADDERALL [Concomitant]
     Active Substance: AMPHETAMINE ASPARTATE\AMPHETAMINE SULFATE\DEXTROAMPHETAMINE SACCHARATE\DEXTROAMPHETAMINE SULFATE
  6. XANAX [Concomitant]
     Active Substance: ALPRAZOLAM

REACTIONS (6)
  - Major depression [None]
  - Generalised anxiety disorder [None]
  - Mania [None]
  - Hypersexuality [None]
  - Libido increased [None]
  - Cerebral disorder [None]

NARRATIVE: CASE EVENT DATE: 20201030
